FAERS Safety Report 8567221-8 (Version None)
Quarter: 2012Q3

REPORT INFORMATION
  Report Type: 
  Country: None (occurrence: None)
  Receive Date: 20120803
  Receipt Date: 20110805
  Transmission Date: 20120928
  Serious: No
  Sender: FDA-Public Use
  Company Number: US-ABBOTT-11P-163-0844404-00

PATIENT
  Sex: Female
  Weight: 62.652 kg

DRUGS (4)
  1. TRILIPIX [Suspect]
     Indication: PRODUCT USED FOR UNKNOWN INDICATION
     Dosage: DAILY
     Route: 048
  2. M.V.I. [Concomitant]
     Indication: PRODUCT USED FOR UNKNOWN INDICATION
  3. NIASPAN [Suspect]
     Indication: LOW DENSITY LIPOPROTEIN INCREASED
     Dosage: AT BEDTIME
     Route: 048
  4. NIASPAN [Suspect]
     Indication: BLOOD TRIGLYCERIDES INCREASED
     Dosage: AT BEDTIME
     Route: 048

REACTIONS (9)
  - FLUSHING [None]
  - BURNING SENSATION [None]
  - DIABETES MELLITUS [None]
  - WEIGHT INCREASED [None]
  - WEIGHT DECREASED [None]
  - PRURITUS [None]
  - BLOOD GLUCOSE INCREASED [None]
  - FEELING HOT [None]
  - HEPATIC ENZYME INCREASED [None]
